FAERS Safety Report 6414128-8 (Version None)
Quarter: 2009Q4

REPORT INFORMATION
  Report Type: 
  Country: None (occurrence: None)
  Receive Date: 20091026
  Receipt Date: 20091019
  Transmission Date: 20100525
  Serious: Yes (Other)
  Sender: FDA-Public Use
  Company Number: US-MERCK-0910USA02503

PATIENT
  Sex: Female

DRUGS (4)
  1. FOSAMAX [Suspect]
     Route: 065
  2. ACTONEL [Suspect]
     Route: 065
  3. ACETAMINOPHEN [Suspect]
     Route: 065
  4. GABAPENTIN [Suspect]
     Route: 065

REACTIONS (5)
  - BLOOD POTASSIUM DECREASED [None]
  - CONVULSION [None]
  - DRUG HYPERSENSITIVITY [None]
  - GASTROINTESTINAL INFECTION [None]
  - RASH [None]
